FAERS Safety Report 7037558-2 (Version None)
Quarter: 2010Q4

REPORT INFORMATION
  Report Type: 
  Country: None (occurrence: None)
  Receive Date: 20101011
  Receipt Date: 20101005
  Transmission Date: 20110411
  Serious: Yes (Other)
  Sender: FDA-Public Use
  Company Number: US-VALEANT-2010VX001211

PATIENT
  Age: 45 Year
  Sex: Male
  Weight: 79 kg

DRUGS (3)
  1. FLUOROURACIL [Suspect]
     Indication: PRECANCEROUS SKIN LESION
     Route: 061
     Dates: start: 20100501
  2. MULTIPLE VITAMINS [Concomitant]
     Route: 065
  3. FISH OIL [Concomitant]
     Route: 065

REACTIONS (5)
  - EYE DISORDER [None]
  - INFLAMMATION [None]
  - RETINAL DISORDER [None]
  - VISION BLURRED [None]
  - VISUAL IMPAIRMENT [None]
